FAERS Safety Report 6198595-3 (Version None)
Quarter: 2009Q2

REPORT INFORMATION
  Report Type: 
  Country: None (occurrence: None)
  Receive Date: 20090521
  Receipt Date: 20090510
  Transmission Date: 20091009
  Serious: Yes (Other)
  Sender: FDA-Public Use
  Company Number: US-PFIZER INC-2009212203

PATIENT
  Sex: Female
  Weight: 71.667 kg

DRUGS (4)
  1. CHANTIX [Suspect]
     Indication: SMOKING CESSATION THERAPY
  2. HUMALOG [Concomitant]
     Indication: DIABETES MELLITUS
     Dosage: UNK
  3. LANTUS [Concomitant]
     Indication: DIABETES MELLITUS
     Dosage: UNK
  4. ALL OTHER THERAPEUTIC PRODUCTS [Concomitant]
     Indication: HYPERSENSITIVITY
     Dosage: UNK

REACTIONS (1)
  - BLOOD GLUCOSE INCREASED [None]
